FAERS Safety Report 4485733-3 (Version None)
Quarter: 2004Q4

REPORT INFORMATION
  Report Type: 
  Country: None (occurrence: None)
  Receive Date: 20041026
  Receipt Date: 20041015
  Transmission Date: 20050328
  Serious: Yes (Other)
  Sender: FDA-Public Use
  Company Number: DE-JNJFOC-20041004738

PATIENT
  Age: 77 Year
  Sex: Female

DRUGS (2)
  1. DURAGESIC [Suspect]
     Route: 062
  2. LIPID LOWERING AGENT [Concomitant]

REACTIONS (2)
  - HORMONE LEVEL ABNORMAL [None]
  - LIVER FUNCTION TEST ABNORMAL [None]
